FAERS Safety Report 23364785 (Version 2)
Quarter: 2024Q2

REPORT INFORMATION
  Report Type: Report from Study
  Country: US (occurrence: US)
  Receive Date: 20240104
  Receipt Date: 20240411
  Transmission Date: 20240716
  Serious: Yes (Hospitalization, Other)
  Sender: FDA-Public Use
  Company Number: US-ACADIA PHARMACEUTICALS INC.-ACA-2023-PIM-005713

PATIENT
  Age: 80 Year
  Sex: Male

DRUGS (12)
  1. NUPLAZID [Suspect]
     Active Substance: PIMAVANSERIN TARTRATE
     Indication: Hallucination
     Dosage: 34 MILLIGRAM, QD
     Route: 048
     Dates: start: 202311
  2. NUPLAZID [Suspect]
     Active Substance: PIMAVANSERIN TARTRATE
     Indication: Parkinson^s disease
     Dosage: 34 MILLIGRAM, QD
     Route: 048
     Dates: start: 20231201
  3. NUPLAZID [Suspect]
     Active Substance: PIMAVANSERIN TARTRATE
     Indication: Delusion
  4. CARBIDOPA [Concomitant]
     Active Substance: CARBIDOPA
  5. KEPPRA [Concomitant]
     Active Substance: LEVETIRACETAM
     Dosage: 500 MILLIGRAM
  6. KEPPRA [Concomitant]
     Active Substance: LEVETIRACETAM
     Dosage: 1000 UNK
  7. MELATONIN [Concomitant]
     Active Substance: MELATONIN
  8. PEPCID [Concomitant]
     Active Substance: FAMOTIDINE
     Dosage: 200 MILLIGRAM
  9. PEPCID [Concomitant]
     Active Substance: FAMOTIDINE
     Dosage: 20 MILLIGRAM
  10. PEPTO-BISMOL [Concomitant]
     Active Substance: BISMUTH SUBSALICYLATE
     Dosage: 262MG/15 SUS
  11. RIVASTIGMINE [Concomitant]
     Active Substance: RIVASTIGMINE
     Dosage: 13.3MG/2 PT2
  12. TRAZODONE HCL [Concomitant]
     Active Substance: TRAZODONE HYDROCHLORIDE

REACTIONS (12)
  - Seizure [Recovered/Resolved]
  - Aspiration [Recovered/Resolved]
  - Haematemesis [Recovered/Resolved]
  - Dysarthria [Recovered/Resolved]
  - Musculoskeletal stiffness [Recovered/Resolved]
  - Bradykinesia [Recovered/Resolved]
  - Hallucinations, mixed [Recovered/Resolved]
  - Head injury [Unknown]
  - Balance disorder [Unknown]
  - Product dose omission issue [Recovered/Resolved]
  - Fall [Unknown]
  - Agitation [Unknown]

NARRATIVE: CASE EVENT DATE: 20231101
